APPROVED DRUG PRODUCT: IMURAN
Active Ingredient: AZATHIOPRINE
Strength: 50MG
Dosage Form/Route: TABLET;ORAL
Application: N016324 | Product #001 | TE Code: AB
Applicant: LEGACY PHARMA INC
Approved: Approved Prior to Jan 1, 1982 | RLD: Yes | RS: Yes | Type: RX